FAERS Safety Report 24104391 (Version 1)
Quarter: 2024Q3

REPORT INFORMATION
  Report Type: Spontaneous
  Country: GB (occurrence: GB)
  Receive Date: 20240717
  Receipt Date: 20240717
  Transmission Date: 20241017
  Serious: Yes (Other)
  Sender: NOVARTIS
  Company Number: GB-002147023-NVSC2024GB146546

PATIENT
  Age: 20 Year
  Sex: Female

DRUGS (1)
  1. TEGRETOL [Suspect]
     Active Substance: CARBAMAZEPINE
     Indication: Product used for unknown indication
     Dosage: 30 MG, BID
     Route: 065

REACTIONS (5)
  - Epilepsy [Unknown]
  - Cerebrovascular accident [Unknown]
  - Dysphagia [Unknown]
  - Adrenal disorder [Unknown]
  - Sleep apnoea syndrome [Unknown]
